FAERS Safety Report 8622205 (Version 2)
Quarter: 2015Q4

REPORT INFORMATION
  Report Type: Report from Study
  Country: US (occurrence: US)
  Receive Date: 20120619
  Receipt Date: 20151221
  Transmission Date: 20160305
  Serious: Yes (Other)
  Sender: FDA-Public Use
  Company Number: US-ROCHE-1077360

PATIENT

DRUGS (2)
  1. FLUDARABINE [Suspect]
     Active Substance: FLUDARABINE PHOSPHATE
     Indication: CHRONIC LYMPHOCYTIC LEUKAEMIA
     Dosage: ON DAY 1-5
     Route: 065
  2. RITUXIMAB [Suspect]
     Active Substance: RITUXIMAB
     Indication: CHRONIC LYMPHOCYTIC LEUKAEMIA
     Dosage: ON DAY 1 REPEATED EVERY 4 WEEKS (DOSE SPLITTED IN 50 MGM2 ON DAY1 AND 325 MG/M2 ON DAY3 IN CYCLE1)
     Route: 042

REACTIONS (13)
  - Dizziness [Recovering/Resolving]
  - Decreased appetite [Unknown]
  - Pyrexia [Unknown]
  - Anaemia [Unknown]
  - Dyspnoea [Unknown]
  - Thrombocytopenia [Unknown]
  - Alanine aminotransferase increased [Unknown]
  - Aspartate aminotransferase increased [Unknown]
  - Tumour lysis syndrome [Unknown]
  - Asthenia [Unknown]
  - Neutropenia [Unknown]
  - Depression [Recovering/Resolving]
  - Hypersensitivity [Unknown]
